FAERS Safety Report 6686503-8 (Version None)
Quarter: 2010Q2

REPORT INFORMATION
  Report Type: 
  Country: None (occurrence: None)
  Receive Date: 20100419
  Receipt Date: 20100409
  Transmission Date: 20101027
  Serious: Yes (Other)
  Sender: FDA-Public Use
  Company Number: SK-ROCHE-696531

PATIENT
  Sex: Female

DRUGS (6)
  1. AVASTIN [Suspect]
     Route: 065
     Dates: start: 20080606, end: 20100223
  2. PACLITAXEL [Concomitant]
     Dates: end: 20090301
  3. ANASTROZOLE [Concomitant]
  4. LOZAP (LOSARTAN) [Concomitant]
  5. BETALOC [Concomitant]
     Dosage: DRUG REPORTED AS BETALOC (METOPROLOL)
  6. ASCORUTIN [Concomitant]
     Dosage: DRUG REPORTED AS ASCORUTIN (RUTOZID)

REACTIONS (4)
  - BREAST CANCER METASTATIC [None]
  - HYPERTENSION [None]
  - MALIGNANT NEOPLASM PROGRESSION [None]
  - RENAL FAILURE CHRONIC [None]
